FAERS Safety Report 7778276-2 (Version None)
Quarter: 2011Q3

REPORT INFORMATION
  Report Type: 
  Country: None (occurrence: None)
  Receive Date: 20110926
  Receipt Date: 20110908
  Transmission Date: 20111222
  Serious: Yes (Other)
  Sender: FDA-Public Use
  Company Number: US-BAYER-2011-084638

PATIENT
  Age: 11 Year
  Sex: Male
  Weight: 48 kg

DRUGS (1)
  1. ALEVE (CAPLET) [Suspect]
     Indication: ABDOMINAL PAIN UPPER
     Dosage: 1 DF, ONCE
     Route: 048
     Dates: start: 20110908

REACTIONS (3)
  - PRURITUS [None]
  - ERYTHEMA [None]
  - URTICARIA [None]
